FAERS Safety Report 8709590 (Version 2)
Quarter: 2012Q4

REPORT INFORMATION
  Report Type: 
  Country: US (occurrence: US)
  Receive Date: 20120806
  Receipt Date: 20120912
  Transmission Date: 20130627
  Serious: Yes (Other)
  Sender: FDA-Public Use
  Company Number: US-GLAXOSMITHKLINE-A0987556A

PATIENT
  Age: 77 Year
  Sex: Female

DRUGS (9)
  1. ADVAIR [Suspect]
     Indication: ASTHMA
     Dosage: 1PUFF Twice per day
     Route: 055
     Dates: start: 200707
  2. PRO-AIR [Concomitant]
  3. SIMVASTATIN [Concomitant]
  4. TYLENOL PM [Concomitant]
  5. XANAX [Concomitant]
  6. TYLENOL WITH CODEINE [Concomitant]
     Indication: COUGH
  7. ATENOLOL [Concomitant]
  8. VITAMINS [Concomitant]
  9. BENADRYL [Concomitant]

REACTIONS (7)
  - Asthma [Not Recovered/Not Resolved]
  - Wheezing [Unknown]
  - Cough [Unknown]
  - Inhalation therapy [Unknown]
  - Dyspnoea [Unknown]
  - Drug ineffective [Unknown]
  - Product quality issue [Unknown]
